FAERS Safety Report 9408461 (Version 3)
Quarter: 2014Q1

REPORT INFORMATION
  Report Type: Spontaneous
  Country: US (occurrence: US)
  Receive Date: 20130718
  Receipt Date: 20140116
  Transmission Date: 20141002
  Serious: Yes (Hospitalization)
  Sender: FDA-Public Use
  Company Number: US-B.I. PHARMACEUTICALS,INC./RIDGEFIELD-2012-BP-11003BP

PATIENT
  Sex: Male
  Weight: 83.91 kg

DRUGS (22)
  1. PRADAXA [Suspect]
     Indication: ATRIAL FIBRILLATION
     Dosage: 300 MG
     Dates: start: 20110405
  2. PRADAXA [Suspect]
     Indication: ANTICOAGULANT THERAPY
  3. SINUS MEDICINE [Concomitant]
  4. VITAMIN D [Concomitant]
  5. ULORIC [Concomitant]
     Dosage: 80 MG
     Dates: start: 201010, end: 201207
  6. RANITIDINE [Concomitant]
     Dosage: 150 MG
     Dates: start: 201011, end: 201111
  7. FLUTICASONE [Concomitant]
  8. ENALAPRIL [Concomitant]
     Dates: start: 201004, end: 201110
  9. DOXAZOSIN [Concomitant]
     Dates: start: 201008, end: 201207
  10. CRESTOR [Concomitant]
     Dosage: 10 MG
  11. CARVEDILOL [Concomitant]
     Dosage: 25 MG
     Dates: start: 201004, end: 201206
  12. AMLODIPINE [Concomitant]
     Dosage: 2.5 MG
  13. ASPIRIN [Concomitant]
     Dosage: 81 MG
  14. LOVAZA [Concomitant]
     Dosage: 4 G
  15. VASOTEC [Concomitant]
     Dosage: 40 MG
  16. ATRIPLA [Concomitant]
     Dosage: 1 G
  17. ANDROGEL [Concomitant]
  18. CARDURA [Concomitant]
     Dosage: 8 MG
  19. GABAPENTIN [Concomitant]
     Dosage: 600 MG
  20. VALTREX [Concomitant]
     Dosage: 500 MG
  21. CITRACAL [Concomitant]
  22. ZOMETA [Concomitant]
     Route: 042

REACTIONS (3)
  - Upper gastrointestinal haemorrhage [Recovered/Resolved]
  - Anaemia [Unknown]
  - Renal failure acute [Recovered/Resolved]
